FAERS Safety Report 9278544 (Version 4)
Quarter: 2014Q2

REPORT INFORMATION
  Report Type: Report from Study
  Country: GB (occurrence: US)
  Receive Date: 20130508
  Receipt Date: 20140627
  Transmission Date: 20141212
  Serious: Yes (Hospitalization)
  Sender: FDA-Public Use
  Company Number: GB-GLAXOSMITHKLINE-A1022708A

PATIENT
  Age: 73 Year
  Sex: Male
  Weight: 101.1 kg

DRUGS (8)
  1. OFATUMUMAB [Suspect]
     Indication: CHRONIC LYMPHOCYTIC LEUKAEMIA
     Dosage: 1000MG CYCLIC
     Route: 042
     Dates: start: 20130220, end: 20130411
  2. IDELALISIB [Suspect]
     Indication: CHRONIC LYMPHOCYTIC LEUKAEMIA
     Dosage: 150MG TWICE PER DAY
     Route: 048
     Dates: start: 20130220, end: 20130424
  3. ACYCLOVIR [Concomitant]
     Dates: start: 20130219
  4. ATORVASTATIN [Concomitant]
  5. ZIAC [Concomitant]
  6. TAMSULOSIN [Concomitant]
  7. POTASSIUM CHLORIDE [Concomitant]
     Dates: start: 20130411
  8. ASPIRIN [Concomitant]
     Dates: start: 20130421, end: 20130421

REACTIONS (3)
  - Anaemia [Recovered/Resolved]
  - Febrile neutropenia [Recovered/Resolved]
  - Pneumonitis [Recovered/Resolved with Sequelae]
